FAERS Safety Report 4635150-8 (Version None)
Quarter: 2005Q2

REPORT INFORMATION
  Report Type: 
  Country: None (occurrence: None)
  Receive Date: 20050414
  Receipt Date: 20050307
  Transmission Date: 20051028
  Serious: Yes (Other)
  Sender: FDA-Public Use
  Company Number: US-GLAXOSMITHKLINE-A0548595A

PATIENT
  Age: 55 Year
  Sex: Male

DRUGS (6)
  1. PAXIL CR [Suspect]
     Indication: DEPRESSION
     Dosage: 25MG PER DAY
     Route: 048
     Dates: start: 20020901, end: 20050228
  2. LEXAPRO [Concomitant]
     Route: 065
  3. AMBIEN [Concomitant]
  4. PROTONIX [Concomitant]
  5. DEPAKOTE [Concomitant]
  6. PEPCID [Concomitant]

REACTIONS (13)
  - ABNORMAL BEHAVIOUR [None]
  - CHOKING [None]
  - DIZZINESS [None]
  - DRUG TOXICITY [None]
  - DYSKINESIA [None]
  - DYSSTASIA [None]
  - FATIGUE [None]
  - FEELING DRUNK [None]
  - INSOMNIA [None]
  - PHARMACEUTICAL PRODUCT COMPLAINT [None]
  - POSTURE ABNORMAL [None]
  - SPEECH DISORDER [None]
  - TREMOR [None]
